FAERS Safety Report 8943892 (Version 1)
Quarter: 2012Q4

REPORT INFORMATION
  Report Type: 
  Country: GB (occurrence: GB)
  Receive Date: 20121204
  Receipt Date: 20121204
  Transmission Date: 20130627
  Serious: Yes (Hospitalization)
  Sender: FDA-Public Use
  Company Number: GB-TEVA-372190ISR

PATIENT
  Age: 61 Year
  Sex: Male

DRUGS (37)
  1. RAMIPRIL [Suspect]
     Indication: PRODUCT USED FOR UNKNOWN INDICATION
     Dosage: 5 Milligram Daily;
     Route: 048
     Dates: start: 20101103, end: 20111026
  2. RAMIPRIL [Suspect]
     Dosage: 5 Milligram Daily;
     Route: 048
     Dates: start: 20111026, end: 20120705
  3. RAMIPRIL [Suspect]
     Dosage: 3.75 Milligram Daily;
     Route: 048
     Dates: start: 20111026, end: 20120705
  4. RAMIPRIL [Suspect]
     Dosage: 1.25 Milligram Daily;
     Route: 048
     Dates: start: 20120801
  5. RAMIPRIL [Suspect]
     Dosage: 5 Milligram Daily;
     Route: 048
     Dates: start: 20120706, end: 20120727
  6. BURINEX [Suspect]
     Indication: PRODUCT USED FOR UNKNOWN INDICATION
     Dosage: 2 Milligram Daily; 2mg (1 in 1 D)
     Route: 048
     Dates: start: 20101102, end: 20110309
  7. BURINEX [Suspect]
     Dosage: 2 Milligram Daily; 2mg (1 in 1 D)
     Route: 048
     Dates: start: 20120604, end: 20120716
  8. BURINEX [Suspect]
     Dosage: 2 Milligram Daily; 1mg (2 in 1 D)
     Route: 048
     Dates: start: 20120716, end: 20120727
  9. BURINEX [Suspect]
     Dosage: 2 Milligram Daily; 2 mg, (1 in 1 D)
     Route: 048
     Dates: start: 20120730
  10. ALEGLITAZAR [Suspect]
     Indication: CARDIOVASCULAR EVENT PROPHYLAXIS
     Route: 048
     Dates: start: 20101122
  11. LEVEMIR [Concomitant]
     Indication: PRODUCT USED FOR UNKNOWN INDICATION
     Dosage: 30 IU /L
     Route: 058
     Dates: start: 20020408, end: 20111212
  12. LEVEMIR [Concomitant]
     Dosage: 31 Unit
     Route: 058
     Dates: start: 20111212, end: 20120602
  13. LEVEMIR [Concomitant]
     Dosage: 10 units (1 in 1 D)
     Route: 058
     Dates: start: 20120815
  14. DIAZEPAM [Concomitant]
     Indication: PRODUCT USED FOR UNKNOWN INDICATION
     Dosage: 9 Milligram Daily;
     Route: 048
     Dates: start: 201206
  15. FRUSEMIDE [Concomitant]
     Indication: PRODUCT USED FOR UNKNOWN INDICATION
     Dosage: 160 Milligram Daily;
     Route: 048
     Dates: start: 20101217, end: 20110309
  16. FRUSEMIDE [Concomitant]
     Dosage: 80 Milligram Daily;
     Route: 048
     Dates: start: 20110309, end: 20120604
  17. FRUSEMIDE [Concomitant]
     Dosage: 120 Milligram Daily;
     Route: 048
     Dates: start: 20110309, end: 20110705
  18. FRUSEMIDE [Concomitant]
     Route: 048
     Dates: start: 20110705, end: 20120604
  19. BENDROFLUMETHIAZIDE [Concomitant]
     Indication: PRODUCT USED FOR UNKNOWN INDICATION
     Dosage: 2.5 Milligram Daily;
     Route: 048
     Dates: start: 20101104, end: 20110516
  20. BENDROFLUMETHIAZIDE [Concomitant]
     Dosage: 1.0714 Milligram Daily;
     Route: 048
     Dates: start: 20111206, end: 20111212
  21. BENDROFLUMETHIAZIDE [Concomitant]
     Dosage: 2.5 Milligram Daily;
     Route: 048
     Dates: start: 20111212, end: 20120604
  22. AMILORIDE [Concomitant]
     Indication: PRODUCT USED FOR UNKNOWN INDICATION
     Dosage: 5 Milligram Daily;
     Route: 048
     Dates: start: 20110208, end: 20110222
  23. NORTRIPTYLINE HYDROCHLORIDE [Concomitant]
     Indication: PRODUCT USED FOR UNKNOWN INDICATION
     Dosage: 10 Milligram Daily;
     Route: 048
     Dates: start: 20110117
  24. PARACETAMOL [Concomitant]
     Indication: PRODUCT USED FOR UNKNOWN INDICATION
     Dosage: 1 Gram Daily;
     Route: 048
     Dates: start: 20110324
  25. EPLERENONE [Concomitant]
     Indication: PRODUCT USED FOR UNKNOWN INDICATION
     Dosage: 2 Milligram Daily;
     Route: 048
     Dates: start: 20120801
  26. PREGABALIN [Concomitant]
     Indication: PRODUCT USED FOR UNKNOWN INDICATION
     Dosage: 100 Milligram Daily;
     Route: 048
     Dates: start: 20120727
  27. FERROUS SULPHATE [Concomitant]
     Indication: PRODUCT USED FOR UNKNOWN INDICATION
     Dosage: 600 Milligram Daily;
     Route: 048
     Dates: start: 20120727
  28. FUSIDIC ACID [Concomitant]
     Indication: PRODUCT USED FOR UNKNOWN INDICATION
     Dosage: 1500 Milligram Daily;
     Route: 048
     Dates: start: 20120405, end: 20120501
  29. CYCLIZINE [Concomitant]
     Indication: PRODUCT USED FOR UNKNOWN INDICATION
     Dosage: 150 Milligram Daily;
     Route: 048
     Dates: start: 20120405, end: 20120501
  30. ASPIRIN [Concomitant]
     Indication: PRODUCT USED FOR UNKNOWN INDICATION
     Dosage: 75 Milligram Daily;
     Route: 048
  31. CLOPIDOGREL [Concomitant]
     Indication: PRODUCT USED FOR UNKNOWN INDICATION
     Dosage: 75 Milligram Daily;
     Route: 048
     Dates: start: 20101101
  32. INSPRA [Concomitant]
     Indication: PRODUCT USED FOR UNKNOWN INDICATION
     Dosage: 25 Milligram Daily;
     Route: 048
     Dates: start: 20101115
  33. ROSUVASTATIN [Concomitant]
     Indication: PRODUCT USED FOR UNKNOWN INDICATION
     Dosage: 40 Milligram Daily;
     Route: 048
     Dates: start: 20101102
  34. NOVORAPID [Concomitant]
     Indication: PRODUCT USED FOR UNKNOWN INDICATION
     Dosage: 85 units
     Route: 058
     Dates: start: 20020418, end: 20111212
  35. NOVORAPID [Concomitant]
     Dosage: 31 units
     Route: 058
     Dates: start: 20111212, end: 20120602
  36. LANSOPRAZOLE [Concomitant]
     Indication: PRODUCT USED FOR UNKNOWN INDICATION
     Dosage: 30 Milligram Daily;
     Route: 048
     Dates: start: 20101101
  37. BECLOMETHASONE [Concomitant]
     Indication: PRODUCT USED FOR UNKNOWN INDICATION
     Dosage: 1000 Microgram Daily;
     Route: 055

REACTIONS (1)
  - Fall [Recovered/Resolved]
